FAERS Safety Report 10560047 (Version 7)
Quarter: 2015Q2

REPORT INFORMATION
  Report Type: Spontaneous
  Country: US (occurrence: US)
  Receive Date: 20141103
  Receipt Date: 20150610
  Transmission Date: 20150821
  Serious: Yes (Hospitalization, Other)
  Sender: FDA-Public Use
  Company Number: US-SA-2014SA028128

PATIENT
  Age: 68 Year
  Sex: Male
  Weight: 72 kg

DRUGS (15)
  1. PLAVIX [Suspect]
     Active Substance: CLOPIDOGREL BISULFATE
     Indication: PROPHYLAXIS
     Route: 065
     Dates: start: 20110303, end: 20110615
  2. RYNATAN /USA/ [Concomitant]
     Dates: start: 20060221
  3. LISINOPRIL. [Concomitant]
     Active Substance: LISINOPRIL
     Dates: start: 20100208
  4. FLONASE [Concomitant]
     Active Substance: FLUTICASONE PROPIONATE
     Dosage: DOSE: 2 SNIFFS
     Dates: start: 20040326
  5. COLACE [Concomitant]
     Active Substance: DOCUSATE SODIUM
     Dates: start: 20101204
  6. ASPIRIN. [Suspect]
     Active Substance: ASPIRIN
     Route: 065
     Dates: start: 20110829
  7. ALLEGRA [Concomitant]
     Active Substance: FEXOFENADINE HYDROCHLORIDE
     Dates: start: 20080218
  8. ASPIRIN. [Suspect]
     Active Substance: ASPIRIN
     Route: 065
  9. ZOCOR [Concomitant]
     Active Substance: SIMVASTATIN
     Dosage: 80 MG HALF DAILY
  10. FLOMAX [Concomitant]
     Active Substance: TAMSULOSIN HYDROCHLORIDE
     Dates: start: 20010807
  11. ASPIRIN. [Suspect]
     Active Substance: ASPIRIN
     Route: 065
     Dates: start: 20110628, end: 20110829
  12. ATENOLOL. [Concomitant]
     Active Substance: ATENOLOL
  13. AMBIEN [Concomitant]
     Active Substance: ZOLPIDEM TARTRATE
     Dates: start: 20101115
  14. PLAVIX [Suspect]
     Active Substance: CLOPIDOGREL BISULFATE
     Indication: PERIPHERAL ARTERIAL OCCLUSIVE DISEASE
     Route: 065
     Dates: start: 20110303, end: 20110615
  15. ADVIL [Concomitant]
     Active Substance: IBUPROFEN
     Indication: ARTHRALGIA

REACTIONS (10)
  - Dizziness [Unknown]
  - Gastritis erosive [Unknown]
  - Gastric ulcer [Recovered/Resolved]
  - Faeces discoloured [Unknown]
  - Hiatus hernia [Unknown]
  - Gastrointestinal haemorrhage [Not Recovered/Not Resolved]
  - Gastric disorder [Unknown]
  - Haemorrhoids [Unknown]
  - Haemorrhagic anaemia [Unknown]
  - Duodenitis [Unknown]

NARRATIVE: CASE EVENT DATE: 20110616
